FAERS Safety Report 5730297-7 (Version None)
Quarter: 2008Q2

REPORT INFORMATION
  Report Type: 
  Country: None (occurrence: None)
  Receive Date: 20080502
  Receipt Date: 20080416
  Transmission Date: 20081010
  Serious: Yes (Hospitalization)
  Sender: FDA-Public Use
  Company Number: 190002L08FRA

PATIENT
  Age: 23 Year
  Sex: Female

DRUGS (4)
  1. PERGONAL [Suspect]
     Indication: ANOVULATORY CYCLE
     Dosage: 1 DOSAGE FORMS, 18 IN
  2. PERGONAL [Suspect]
     Indication: INFERTILITY FEMALE
     Dosage: 1 DOSAGE FORMS, 18 IN
  3. CHORIONIC GONADTROPIN [Suspect]
     Indication: ANOVULATORY CYCLE
     Dosage: 1500 IU, 3 IN 1
  4. CHORIONIC GONADTROPIN [Suspect]
     Indication: INFERTILITY FEMALE
     Dosage: 1500 IU, 3 IN 1

REACTIONS (11)
  - ABDOMINAL PAIN [None]
  - ABORTION INDUCED [None]
  - APHASIA [None]
  - CAESAREAN SECTION [None]
  - CEREBRAL ARTERY THROMBOSIS [None]
  - DRUG INEFFECTIVE [None]
  - HEMIPLEGIA [None]
  - MULTIPLE PREGNANCY [None]
  - OVARIAN CYST [None]
  - OVARIAN HYPERSTIMULATION SYNDROME [None]
  - REFUSAL OF TREATMENT BY PATIENT [None]
